FAERS Safety Report 6170493-0 (Version None)
Quarter: 2009Q2

REPORT INFORMATION
  Report Type: 
  Country: None (occurrence: None)
  Receive Date: 20090428
  Receipt Date: 20090416
  Transmission Date: 20091009
  Serious: Yes (Hospitalization)
  Sender: FDA-Public Use
  Company Number: US-PFIZER INC-2008150318

PATIENT
  Sex: Male
  Weight: 133.33 kg

DRUGS (6)
  1. SUNITINIB MALATE [Suspect]
     Indication: METASTATIC RENAL CELL CARCINOMA
     Dosage: 37.5 MG, 1X/DAY
     Route: 048
     Dates: start: 20070828, end: 20080923
  2. ATIVAN [Concomitant]
     Dosage: 1 MG, UNK
     Dates: start: 20070101
  3. LOPRESSOR [Concomitant]
     Dosage: 50 MG, UNK
     Dates: start: 20070101
  4. MICARDIS HCT [Concomitant]
     Dosage: 80 MG, UNK
     Dates: start: 20070101, end: 20090217
  5. MYCOSTATIN [Concomitant]
     Dosage: UNK
     Dates: start: 20060831
  6. LIPITOR [Concomitant]
     Dosage: 20 MG, UNK
     Dates: start: 20070101

REACTIONS (2)
  - CHEST PAIN [None]
  - HYPERTENSION [None]
